FAERS Safety Report 5156312-X (Version None)
Quarter: 2006Q4

REPORT INFORMATION
  Report Type: 
  Country: None (occurrence: None)
  Receive Date: 20061122
  Receipt Date: 20060803
  Transmission Date: 20070319
  Serious: Yes (Hospitalization)
  Sender: FDA-Public Use
  Company Number: FR-GLAXOSMITHKLINE-B0433044A

PATIENT
  Age: 70 Year
  Sex: Male

DRUGS (4)
  1. CLAMOXYL [Suspect]
     Route: 048
     Dates: start: 20060710, end: 20060714
  2. FLAGYL [Suspect]
     Dosage: 500MG THREE TIMES PER DAY
     Route: 048
     Dates: start: 20060710, end: 20060714
  3. ZECLAR [Suspect]
     Route: 048
     Dates: start: 20060710, end: 20060714
  4. INIPOMP [Suspect]
     Route: 048
     Dates: start: 20060710, end: 20060714

REACTIONS (8)
  - ANOREXIA [None]
  - DEHYDRATION [None]
  - DIARRHOEA [None]
  - LEUKOCYTOSIS [None]
  - MALAISE [None]
  - PANCREATITIS ACUTE [None]
  - PYREXIA [None]
  - VERTIGO [None]
